FAERS Safety Report 6927508-9 (Version None)
Quarter: 2010Q3

REPORT INFORMATION
  Report Type: 
  Country: None (occurrence: None)
  Receive Date: 20100817
  Receipt Date: 20100812
  Transmission Date: 20110219
  Serious: Yes (Life-Threatening)
  Sender: FDA-Public Use
  Company Number: FR-BAYER-201035835GPV

PATIENT
  Age: 57 Year
  Sex: Female

DRUGS (4)
  1. TRANSIPEG [Suspect]
     Indication: CONSTIPATION
     Route: 048
     Dates: start: 20091112, end: 20091112
  2. BIPROFENID [Suspect]
     Indication: MUSCULOSKELETAL PAIN
     Dosage: TOTAL DAILY DOSE: 300 MG
     Route: 048
     Dates: start: 20091102, end: 20091112
  3. TOPALGIC [Suspect]
     Indication: MUSCULOSKELETAL PAIN
     Dosage: TOTAL DAILY DOSE: 100 MG
     Route: 048
     Dates: start: 20091102, end: 20091112
  4. NEXIUM [Suspect]
     Indication: MUSCULOSKELETAL PAIN
     Route: 048
     Dates: start: 20091102, end: 20091112

REACTIONS (2)
  - HYPOTENSION [None]
  - URTICARIA [None]
